FAERS Safety Report 8101715-4 (Version None)
Quarter: 2012Q1

REPORT INFORMATION
  Report Type: 
  Country: None (occurrence: None)
  Receive Date: 20120131
  Receipt Date: 20120125
  Transmission Date: 20120608
  Serious: Yes (Other)
  Sender: FDA-Public Use
  Company Number: DE-PFIZER INC-2012012398

PATIENT
  Age: 6 Year
  Sex: Male
  Weight: 21.9 kg

DRUGS (1)
  1. ZITHROMAX [Suspect]
     Indication: PNEUMONIA
     Dosage: UNK
     Route: 048
     Dates: start: 20080304

REACTIONS (2)
  - SJOGREN'S SYNDROME [None]
  - EXCESSIVE EYE BLINKING [None]
